FAERS Safety Report 4515107-8 (Version None)
Quarter: 2004Q4

REPORT INFORMATION
  Report Type: 
  Country: None (occurrence: None)
  Receive Date: 20041201
  Receipt Date: 20041130
  Transmission Date: 20050328
  Serious: Yes (Death)
  Sender: FDA-Public Use
  Company Number: DE-JNJFOC-20041102118

PATIENT
  Sex: Female

DRUGS (4)
  1. RISPERDAL [Suspect]
     Indication: DEMENTIA
     Route: 049
  2. REMINYL [Suspect]
     Indication: DEMENTIA
     Route: 049
  3. SEROQUEL [Concomitant]
  4. ZOLOFT [Concomitant]

REACTIONS (1)
  - SUDDEN DEATH [None]
